FAERS Safety Report 4998368-0 (Version None)
Quarter: 2006Q2

REPORT INFORMATION
  Report Type: 
  Country: None (occurrence: None)
  Receive Date: 20060508
  Receipt Date: 20060425
  Transmission Date: 20061013
  Serious: Yes (Hospitalization)
  Sender: FDA-Public Use
  Company Number: 2006057194

PATIENT
  Age: 52 Year
  Sex: Male

DRUGS (11)
  1. FLUCONAZOLE [Suspect]
     Indication: ILL-DEFINED DISORDER
     Dosage: UNKNOWN, TRAVENOUS
     Route: 042
     Dates: start: 20060308
  2. ACYCLOVIR [Suspect]
     Indication: ILL-DEFINED DISORDER
     Dosage: 750 MG (250 MG, UNKNOWN), INTRAVENOUS
     Route: 042
     Dates: start: 20060308, end: 20060309
  3. OMEPRAZOLE [Suspect]
     Indication: ILL-DEFINED DISORDER
     Dosage: 20 MG (20 MG, UNKNOWN), ORAL
     Route: 048
     Dates: start: 20060302
  4. XATRAL (ALFUZOSIN) [Suspect]
     Indication: ILL-DEFINED DISORDER
     Dosage: 5 MG (2.5 MG, UNKNOWN), ORAL
     Route: 048
     Dates: start: 20060224
  5. INDOMETHACIN [Suspect]
     Indication: ILL-DEFINED DISORDER
     Dosage: 100 MG (50 MG, 2 IN 1 D), ORAL
     Route: 048
     Dates: start: 20060308
  6. MORPHINE HYDROCHLORIDE ^AGUETTANT^ (MORPHINE HYDROCHLORIDE) [Suspect]
     Indication: ILL-DEFINED DISORDER
     Dosage: UNKNOWN
     Route: 065
     Dates: start: 20060308, end: 20060309
  7. PHENOBARBITAL TAB [Concomitant]
  8. NOZINAN (LEVOMEPROMAZINE) [Concomitant]
  9. BISOPROLOL FUMARATE [Concomitant]
  10. PROZAC [Concomitant]
  11. LOVENOX [Concomitant]

REACTIONS (5)
  - COMA [None]
  - DYSPNOEA [None]
  - HYPOTENSION [None]
  - MIOSIS [None]
  - URINARY RETENTION [None]
